FAERS Safety Report 6391104-5 (Version None)
Quarter: 2009Q4

REPORT INFORMATION
  Report Type: 
  Country: None (occurrence: None)
  Receive Date: 20091006
  Receipt Date: 20091006
  Transmission Date: 20100525
  Serious: Yes (Other)
  Sender: FDA-Public Use
  Company Number: None

PATIENT
  Sex: Female
  Weight: 76.2043 kg

DRUGS (2)
  1. BONIVA [Suspect]
     Indication: OSTEOPENIA
     Dosage: 150 1 MONTH PO
     Route: 048
     Dates: start: 20000101, end: 20050101
  2. ACTONEL [Suspect]
     Dosage: 35 1WK PO
     Route: 048
     Dates: start: 20050101, end: 20090101

REACTIONS (2)
  - OSTEOMYELITIS [None]
  - OSTEONECROSIS [None]
